FAERS Safety Report 12331817 (Version 2)
Quarter: 2016Q3

REPORT INFORMATION
  Report Type: Spontaneous
  Country: MA (occurrence: MA)
  Receive Date: 20160504
  Receipt Date: 20160701
  Transmission Date: 20161109
  Serious: Yes (Death)
  Sender: FDA-Public Use
  Company Number: MA-BIOVITRUM-2016MA0298

PATIENT
  Sex: Female

DRUGS (1)
  1. ORFADIN [Suspect]
     Active Substance: NITISINONE
     Indication: TYROSINAEMIA
     Route: 048

REACTIONS (4)
  - Gastrointestinal haemorrhage [Fatal]
  - Condition aggravated [Fatal]
  - Seizure [Fatal]
  - Vomiting [Fatal]

NARRATIVE: CASE EVENT DATE: 2016
